FAERS Safety Report 8114132-8 (Version None)
Quarter: 2012Q1

REPORT INFORMATION
  Report Type: 
  Country: None (occurrence: None)
  Receive Date: 20120204
  Receipt Date: 20120127
  Transmission Date: 20120608
  Serious: Yes (Hospitalization, Disabling)
  Sender: FDA-Public Use
  Company Number: GB-ALLERGAN-1201102US

PATIENT
  Age: 72 Year
  Sex: Male

DRUGS (13)
  1. BOTULINUM TOXIN TYPE A [Suspect]
     Indication: MUSCLE SPASTICITY
  2. PLACEBO [Suspect]
     Indication: PRODUCT USED FOR UNKNOWN INDICATION
  3. INDAPAMIDE [Concomitant]
     Indication: HYPERTENSION
     Dosage: UNK
  4. WARFARIN SODIUM [Concomitant]
     Indication: ANTICOAGULANT THERAPY
     Dosage: UNK
  5. BOTULINUM TOXIN TYPE A [Suspect]
     Indication: PAIN
     Dosage: 200 UNITS, SINGLE
     Route: 030
     Dates: start: 20111018, end: 20111018
  6. THIAMINE HCL [Concomitant]
     Indication: VITAMIN SUPPLEMENTATION
     Dosage: UNK
  7. BISOPROLOL [Concomitant]
     Dosage: UNK
  8. TAMSULOSIN HCL [Concomitant]
     Indication: PROSTATISM
     Dosage: UNK
  9. PLACEBO [Suspect]
     Indication: MUSCLE SPASTICITY
  10. BOTULINUM TOXIN TYPE A [Suspect]
     Indication: PRODUCT USED FOR UNKNOWN INDICATION
  11. PLACEBO [Suspect]
     Indication: PAIN
     Dosage: 200 UNITS, SINGLE
     Route: 030
     Dates: start: 20111018, end: 20111018
  12. PERINDOPRIL ERBUMINE [Concomitant]
     Indication: HYPERTENSION
     Dosage: UNK
  13. SIMVASTATIN [Concomitant]
     Indication: HYPERLIPIDAEMIA
     Dosage: UNK

REACTIONS (1)
  - CEREBROVASCULAR ACCIDENT [None]
